FAERS Safety Report 16358541 (Version 4)
Quarter: 2019Q3

REPORT INFORMATION
  Report Type: Report from Study
  Country: US (occurrence: US)
  Receive Date: 20190527
  Receipt Date: 20190917
  Transmission Date: 20191004
  Serious: No
  Sender: FDA-Public Use
  Company Number: PHEH2019US022205

PATIENT
  Sex: Female

DRUGS (2)
  1. TASIGNA [Suspect]
     Active Substance: NILOTINIB
     Dosage: 200 MG, QD
     Route: 048
  2. TASIGNA [Suspect]
     Active Substance: NILOTINIB
     Indication: CHRONIC MYELOID LEUKAEMIA
     Dosage: 200 MG, BID
     Route: 048

REACTIONS (21)
  - Insomnia [Recovering/Resolving]
  - Balance disorder [Recovering/Resolving]
  - Pain [Unknown]
  - Dysgraphia [Unknown]
  - Gingival bleeding [Recovering/Resolving]
  - Cough [Recovering/Resolving]
  - Weight decreased [Recovering/Resolving]
  - Myalgia [Recovering/Resolving]
  - Fatigue [Recovering/Resolving]
  - Nervousness [Unknown]
  - Decreased appetite [Recovering/Resolving]
  - Dry skin [Recovering/Resolving]
  - Asthenia [Recovering/Resolving]
  - Hypokinesia [Unknown]
  - Bone pain [Recovering/Resolving]
  - Arthritis [Recovering/Resolving]
  - Stress [Unknown]
  - Night sweats [Recovering/Resolving]
  - Tremor [Unknown]
  - Muscle spasms [Recovering/Resolving]
  - Skin disorder [Recovering/Resolving]
